FAERS Safety Report 4598561-5 (Version None)
Quarter: 2005Q1

REPORT INFORMATION
  Report Type: 
  Country: None (occurrence: None)
  Receive Date: 20050304
  Receipt Date: 20050221
  Transmission Date: 20050727
  Serious: Yes (Life-Threatening, Other)
  Sender: FDA-Public Use
  Company Number: JP-BRISTOL-MYERS SQUIBB COMPANY-12870101

PATIENT
  Sex: Female

DRUGS (1)
  1. MAXIPIME [Suspect]
     Route: 042
     Dates: start: 20050220, end: 20050220

REACTIONS (5)
  - ANAPHYLACTIC SHOCK [None]
  - BRAIN DEATH [None]
  - NORMAL NEWBORN [None]
  - PREGNANCY [None]
  - RESPIRATORY ARREST [None]
